FAERS Safety Report 5944164-7 (Version None)
Quarter: 2008Q4

REPORT INFORMATION
  Report Type: 
  Country: None (occurrence: None)
  Receive Date: 20081104
  Receipt Date: 20081024
  Transmission Date: 20090506
  Serious: Yes (Other)
  Sender: FDA-Public Use
  Company Number: 2008BI027742

PATIENT
  Age: 73 Year
  Sex: Male

DRUGS (1)
  1. TYSABRI [Suspect]
     Indication: CROHN'S DISEASE
     Dates: start: 20080331

REACTIONS (8)
  - AMNESIA [None]
  - COLON CANCER [None]
  - DIZZINESS [None]
  - EMPHYSEMA [None]
  - HEADACHE [None]
  - SMALL INTESTINE CARCINOMA [None]
  - VERTIGO [None]
  - VOMITING [None]
